FAERS Safety Report 7204385-2 (Version None)
Quarter: 2010Q4

REPORT INFORMATION
  Report Type: 
  Country: None (occurrence: None)
  Receive Date: 20101230
  Receipt Date: 20101112
  Transmission Date: 20110411
  Serious: No
  Sender: FDA-Public Use
  Company Number: US-JNJFOC-20101104660

PATIENT
  Sex: Male
  Weight: 81.65 kg

DRUGS (15)
  1. INVEGA [Suspect]
     Indication: ATTENTION DEFICIT/HYPERACTIVITY DISORDER
     Route: 048
  2. INVEGA [Suspect]
     Route: 048
  3. INVEGA [Suspect]
     Route: 048
  4. INVEGA [Suspect]
     Indication: AUTISM
     Route: 048
  5. INVEGA [Suspect]
     Route: 048
  6. INVEGA [Suspect]
     Route: 048
  7. INVEGA [Suspect]
     Indication: SCHIZOPHRENIA
     Route: 048
  8. INVEGA [Suspect]
     Route: 048
  9. INVEGA [Suspect]
     Route: 048
  10. INVEGA SUSTENNA [Suspect]
     Indication: ATTENTION DEFICIT/HYPERACTIVITY DISORDER
     Route: 030
  11. INVEGA SUSTENNA [Suspect]
     Route: 030
  12. INVEGA SUSTENNA [Suspect]
     Indication: AUTISM
     Route: 030
  13. INVEGA SUSTENNA [Suspect]
     Route: 030
  14. INVEGA SUSTENNA [Suspect]
     Indication: SCHIZOPHRENIA
     Route: 030
  15. INVEGA SUSTENNA [Suspect]
     Route: 030

REACTIONS (2)
  - ANXIETY [None]
  - POSTURE ABNORMAL [None]
